FAERS Safety Report 8123190-6 (Version None)
Quarter: 2012Q1

REPORT INFORMATION
  Report Type: 
  Country: None (occurrence: None)
  Receive Date: 20120208
  Receipt Date: 20120201
  Transmission Date: 20120608
  Serious: Yes (Hospitalization, Other)
  Sender: FDA-Public Use
  Company Number: US-ACTELION-A-US2011-57624

PATIENT

DRUGS (1)
  1. TRACLEER [Suspect]
     Indication: PULMONARY ARTERIAL HYPERTENSION
     Dosage: UNK
     Route: 048

REACTIONS (7)
  - SYNCOPE [None]
  - HEADACHE [None]
  - FALL [None]
  - JOINT INJURY [None]
  - CHEST PAIN [None]
  - MIGRAINE [None]
  - CHEST DISCOMFORT [None]
